FAERS Safety Report 7131320-8 (Version None)
Quarter: 2010Q4

REPORT INFORMATION
  Report Type: 
  Country: None (occurrence: None)
  Receive Date: 20101201
  Receipt Date: 20101122
  Transmission Date: 20110411
  Serious: Yes (Hospitalization)
  Sender: FDA-Public Use
  Company Number: US-PFIZER INC-2010155706

PATIENT
  Sex: Male
  Weight: 21.2 kg

DRUGS (15)
  1. DOXORUBICIN HCL [Suspect]
     Indication: BONE SARCOMA
  2. SOLU-MEDROL [Suspect]
     Indication: BONE SARCOMA
  3. CISPLATIN [Suspect]
     Indication: BONE SARCOMA
  4. L-MTP-PE [Suspect]
     Indication: BONE SARCOMA
  5. ZOFRAN [Concomitant]
  6. PHENERGAN ^AVENTIS PHARMA^ [Concomitant]
  7. DIFLUCAN [Concomitant]
     Dosage: UNK
     Dates: start: 20101014
  8. OMNICEF [Concomitant]
  9. SULFAMETHOXAZOLE AND TRIMETHOPRIM [Concomitant]
  10. BENADRYL [Concomitant]
     Dosage: UNK
     Dates: start: 20100824
  11. GLUTAMINE [Concomitant]
     Dosage: UNK
     Dates: start: 20100712
  12. ROCALTROL [Concomitant]
     Dosage: UNK
     Dates: start: 20100624
  13. TUMS [Concomitant]
  14. POTASSIUM/SODIUM CHLORIDE [Concomitant]
  15. MIRALAX [Concomitant]

REACTIONS (4)
  - NEUTROPENIA [None]
  - RASH [None]
  - THROMBOCYTOPENIA [None]
  - TRANSFUSION REACTION [None]
